FAERS Safety Report 23642844 (Version 1)
Quarter: 2024Q1

REPORT INFORMATION
  Report Type: Spontaneous
  Country: US (occurrence: US)
  Receive Date: 20240318
  Receipt Date: 20240318
  Transmission Date: 20240410
  Serious: Yes (Life-Threatening, Other)
  Sender: FDA-Public Use
  Company Number: US-SANDOZ-SDZ2024US028546

PATIENT
  Age: 79 Year
  Sex: Female

DRUGS (1)
  1. HEPARIN [Suspect]
     Active Substance: HEPARIN SODIUM
     Indication: Product used for unknown indication
     Dosage: UNK
     Route: 041

REACTIONS (1)
  - Pulmonary alveolar haemorrhage [Recovering/Resolving]
